FAERS Safety Report 19288087 (Version 1)
Quarter: 2021Q2

REPORT INFORMATION
  Report Type: Report from Study
  Country: US (occurrence: US)
  Receive Date: 20210521
  Receipt Date: 20210521
  Transmission Date: 20210717
  Serious: Yes (Hospitalization)
  Sender: FDA-Public Use
  Company Number: US-EISAI MEDICAL RESEARCH-EC-2021-092071

PATIENT
  Age: 80 Year
  Sex: Female

DRUGS (1)
  1. LENVIMA [Suspect]
     Active Substance: LENVATINIB
     Indication: THYROID CANCER
     Route: 048
     Dates: start: 20210406

REACTIONS (8)
  - Urinary tract infection [Unknown]
  - Renal impairment [Unknown]
  - Decreased appetite [Unknown]
  - Mental status changes [Unknown]
  - Altered state of consciousness [Unknown]
  - Confusional state [Unknown]
  - Blood calcium decreased [Unknown]
  - Oral pain [Unknown]

NARRATIVE: CASE EVENT DATE: 202105
